FAERS Safety Report 5070221-6 (Version None)
Quarter: 2006Q3

REPORT INFORMATION
  Report Type: 
  Country: None (occurrence: None)
  Receive Date: 20060731
  Receipt Date: 20060724
  Transmission Date: 20061208
  Serious: Yes (Other)
  Sender: FDA-Public Use
  Company Number: 2006JP002175

PATIENT
  Age: 76 Year
  Sex: Male

DRUGS (6)
  1. VESICARE [Suspect]
     Indication: HYPERTONIC BLADDER
     Dosage: 5 MG, UID/QD, ORAL
     Route: 048
     Dates: start: 20060707, end: 20060709
  2. LOXONIN                         ( LOXOPROFEN) [Concomitant]
  3. MUCOSTA              (REBAMIPIDE) [Concomitant]
  4. MYONAL (EPERISONE HYDROCHLORIDE) [Concomitant]
  5. FLIVAS (NAFTOPIDIL) TABLET [Concomitant]
  6. FLAVONATE (FLAVONATE HYDROCHLORIDE) TABLET [Concomitant]

REACTIONS (3)
  - PRURITUS [None]
  - RASH ERYTHEMATOUS [None]
  - URTICARIA GENERALISED [None]
